FAERS Safety Report 4562761-0 (Version None)
Quarter: 2005Q1

REPORT INFORMATION
  Report Type: 
  Country: None (occurrence: None)
  Receive Date: 20050121
  Receipt Date: 20050105
  Transmission Date: 20050727
  Serious: Yes (Other)
  Sender: FDA-Public Use
  Company Number: 6012474F

PATIENT
  Sex: Female

DRUGS (1)
  1. NIASPAN [Suspect]
     Dosage: A FEW WEEKS

REACTIONS (1)
  - ANAPHYLACTIC SHOCK [None]
